FAERS Safety Report 5464520-3 (Version None)
Quarter: 2007Q3

REPORT INFORMATION
  Report Type: 
  Country: None (occurrence: None)
  Receive Date: 20070921
  Receipt Date: 20070913
  Transmission Date: 20080115
  Serious: No
  Sender: FDA-Public Use
  Company Number: US-BOEHRINGER INGELHEIM PHARMACEUTICALS, INC.-2007-BP-21049BP

PATIENT
  Age: 68 Year
  Sex: Male

DRUGS (9)
  1. SPIRIVA [Suspect]
     Indication: CHRONIC OBSTRUCTIVE PULMONARY DISEASE
     Route: 055
     Dates: start: 20000101
  2. SPIRIVA [Suspect]
     Indication: BRONCHITIS
  3. LEVOTHYROXINE SODIUM [Concomitant]
  4. LIPITOR [Concomitant]
  5. SUSTIVA [Concomitant]
  6. TRUVADA [Concomitant]
  7. LACTULOSE [Concomitant]
  8. REMERON [Concomitant]
  9. THEOPHYLLINE [Concomitant]

REACTIONS (1)
  - PROSTATE EXAMINATION ABNORMAL [None]
